FAERS Safety Report 7049417-X (Version None)
Quarter: 2010Q4

REPORT INFORMATION
  Report Type: 
  Country: None (occurrence: None)
  Receive Date: 20101018
  Receipt Date: 20101012
  Transmission Date: 20110411
  Serious: No
  Sender: FDA-Public Use
  Company Number: US-PFIZER INC-2010130018

PATIENT
  Sex: Female

DRUGS (1)
  1. ANTIVERT [Suspect]
     Dosage: UNK

REACTIONS (1)
  - THERAPEUTIC RESPONSE UNEXPECTED [None]
